FAERS Safety Report 14706162 (Version 1)
Quarter: 2018Q2

REPORT INFORMATION
  Report Type: Report from Study
  Country: CN (occurrence: CN)
  Receive Date: 20180402
  Receipt Date: 20180402
  Transmission Date: 20180711
  Serious: Yes (Hospitalization)
  Sender: FDA-Public Use
  Company Number: CN-ASTRAZENECA-2018SE40306

PATIENT
  Age: 26474 Day
  Sex: Male

DRUGS (5)
  1. MEDI4736 [Suspect]
     Active Substance: DURVALUMAB
     Indication: NON-SMALL CELL LUNG CANCER
     Route: 042
     Dates: start: 20180227, end: 20180227
  2. IBANDRONATE SODIUM. [Concomitant]
     Active Substance: IBANDRONATE SODIUM
     Indication: PROPHYLAXIS
     Dosage: 4.0 MG ONCE
     Route: 042
     Dates: start: 20180120, end: 20180120
  3. TRAMADOL SUSTAINED RELEASE TABLETS [Concomitant]
     Indication: ANALGESIC THERAPY
     Dosage: 100.0 MG BID
     Route: 048
     Dates: start: 20180119, end: 20180124
  4. OXYCODONE [Concomitant]
     Active Substance: OXYCODONE
     Indication: ANALGESIC THERAPY
     Dosage: 10.0 MG OTHER Q12H
     Route: 048
     Dates: start: 20180124, end: 20180223
  5. MEDI4736 [Suspect]
     Active Substance: DURVALUMAB
     Indication: NON-SMALL CELL LUNG CANCER
     Route: 042
     Dates: start: 20180125, end: 20180125

REACTIONS (1)
  - Dysphagia [Recovering/Resolving]

NARRATIVE: CASE EVENT DATE: 20180326
